FAERS Safety Report 18255415 (Version 1)
Quarter: 2020Q3

REPORT INFORMATION
  Report Type: Report from Study
  Country: CN (occurrence: CN)
  Receive Date: 20200911
  Receipt Date: 20200911
  Transmission Date: 20201103
  Serious: Yes (Other)
  Sender: FDA-Public Use
  Company Number: CN-BRISTOL-MYERS SQUIBB COMPANY-BMS-2020-072654

PATIENT
  Age: 76 Year
  Sex: Male

DRUGS (2)
  1. NIVOLUMAB [Suspect]
     Active Substance: NIVOLUMAB
     Indication: NON-SMALL CELL LUNG CANCER
     Dosage: 180 MILLIGRAM, Q4WK
     Route: 042
     Dates: start: 20200806
  2. NIVOLUMAB [Suspect]
     Active Substance: NIVOLUMAB
     Indication: SQUAMOUS CELL CARCINOMA
     Dosage: 180 MILLIGRAM, Q4WK
     Route: 042
     Dates: start: 20200226, end: 20200328

REACTIONS (3)
  - Myelosuppression [Unknown]
  - Prescribed underdose [Unknown]
  - Pneumonitis [Unknown]

NARRATIVE: CASE EVENT DATE: 202003
